FAERS Safety Report 4849677-7 (Version None)
Quarter: 2005Q4

REPORT INFORMATION
  Report Type: 
  Country: None (occurrence: None)
  Receive Date: 20051207
  Receipt Date: 20051123
  Transmission Date: 20060501
  Serious: Yes (Life-Threatening, Hospitalization)
  Sender: FDA-Public Use
  Company Number: GBR-2005-0001995

PATIENT
  Age: 40 Year
  Sex: Female

DRUGS (7)
  1. MORPHINE SULFATE [Suspect]
     Dosage: 15 MG, BID,
  2. OLANZAPINE [Suspect]
     Indication: HYPOMANIA
     Dosage: 25 MG, DAILY, ORAL
     Route: 048
  3. BACLOFEN [Concomitant]
  4. DICLOFENAC (DICLOFENAC) [Concomitant]
  5. PARACETAMOL [Concomitant]
  6. OMEPRAZOLE [Concomitant]
  7. VALPROIC ACID [Concomitant]

REACTIONS (5)
  - DRUG INTERACTION [None]
  - DYSPHAGIA [None]
  - PNEUMONIA ASPIRATION [None]
  - RESPIRATORY DEPRESSION [None]
  - SEDATION [None]
